FAERS Safety Report 11187632 (Version 1)
Quarter: 2015Q2

REPORT INFORMATION
  Report Type: Spontaneous
  Country: US (occurrence: US)
  Receive Date: 20150615
  Receipt Date: 20150615
  Transmission Date: 20150821
  Serious: No
  Sender: FDA-Public Use
  Company Number: US-JNJFOC-20150509625

PATIENT
  Age: 70 Year
  Sex: Male
  Weight: 118.84 kg

DRUGS (7)
  1. HCTZ [Concomitant]
     Active Substance: HYDROCHLOROTHIAZIDE
     Indication: DIURETIC THERAPY
     Dates: start: 1995
  2. AMLODIPINE [Concomitant]
     Active Substance: AMLODIPINE BESYLATE
     Indication: LIVER DISORDER
     Dates: start: 2005
  3. AMLODIPINE [Concomitant]
     Active Substance: AMLODIPINE BESYLATE
     Indication: LIVER DISORDER
     Dates: start: 2005
  4. XARELTO [Suspect]
     Active Substance: RIVAROXABAN
     Indication: ARRHYTHMIA
     Route: 048
     Dates: start: 20150507, end: 20150511
  5. RAMIPRIL. [Concomitant]
     Active Substance: RAMIPRIL
     Indication: CARDIAC DISORDER
     Dates: start: 1995
  6. HCTZ [Concomitant]
     Active Substance: HYDROCHLOROTHIAZIDE
     Indication: DIURETIC THERAPY
     Dates: start: 1995
  7. KLORCON [Concomitant]
     Indication: MINERAL SUPPLEMENTATION
     Dates: start: 2014

REACTIONS (2)
  - Listless [Unknown]
  - Asthenia [Unknown]

NARRATIVE: CASE EVENT DATE: 20150507
